FAERS Safety Report 8606370-2 (Version None)
Quarter: 2012Q3

REPORT INFORMATION
  Report Type: 
  Country: None (occurrence: None)
  Receive Date: 20120820
  Receipt Date: 20120807
  Transmission Date: 20120928
  Serious: Yes (Death, Other)
  Sender: FDA-Public Use
  Company Number: US-ROCHE-791678

PATIENT
  Sex: Female
  Weight: 56.25 kg

DRUGS (26)
  1. CITALOPRAM HYDROBROMIDE [Concomitant]
     Route: 048
  2. LIDODERM [Concomitant]
     Route: 061
  3. PREVACID [Concomitant]
     Route: 048
  4. FENTANYL [Concomitant]
  5. DEXAMETHASONE [Concomitant]
  6. TEMAZEPAM [Concomitant]
  7. GLYCOPYRROLATE [Concomitant]
  8. PHENYLEPHRINE HYDROCHLORIDE [Concomitant]
  9. NICARDIPINE HCL [Concomitant]
  10. RITUXIMAB [Suspect]
     Indication: NON-HODGKIN'S LYMPHOMA
     Dosage: 375 MG/M2
     Route: 042
     Dates: start: 20041113, end: 20100204
  11. PROPOFOL [Concomitant]
  12. COLACE [Concomitant]
     Route: 048
  13. ACETAMINOPHEN W/ CODEINE [Concomitant]
     Route: 048
  14. PREDNISONE [Concomitant]
     Route: 048
  15. MIDODRINE HYDROCHLORIDE [Concomitant]
     Route: 048
  16. TYLENOL [Concomitant]
  17. ZANTAC [Concomitant]
  18. MANNITOL [Concomitant]
  19. VECURONIUM BROMIDE [Concomitant]
  20. ONDANSETRON [Concomitant]
  21. NEOSTIGMINE BROMIDE [Concomitant]
  22. INSULIN ASPART [Concomitant]
     Dosage: 6 UNITS  3 TIMES A DAY
     Route: 058
  23. SENNA [Concomitant]
     Dosage: 1-2 TABS ONCE A DAY AT BED TIME
     Route: 048
  24. EPHEDRINE [Concomitant]
  25. ESMOLOL HCL [Concomitant]
  26. CEFAZOLIN [Concomitant]

REACTIONS (7)
  - DIZZINESS [None]
  - PRURITUS [None]
  - THROMBOCYTOPENIA [None]
  - PAIN [None]
  - SJOGREN'S SYNDROME [None]
  - PROGRESSIVE MULTIFOCAL LEUKOENCEPHALOPATHY [None]
  - HAEMATOMA [None]
